FAERS Safety Report 9400019 (Version 1)
Quarter: 2013Q2

REPORT INFORMATION
  Report Type: Spontaneous
  Country: US (occurrence: None)
  Receive Date: 20130604
  Receipt Date: 20130604
  Transmission Date: 20140414
  Serious: Yes (Death)
  Sender: FDA-Public Use
  Company Number: OPCR20130225

PATIENT
  Age: 40 Year
  Sex: Male
  Weight: 112.04 kg

DRUGS (10)
  1. OPANA ER [Suspect]
     Indication: PAIN
     Route: 048
  2. OPANA [Concomitant]
  3. HYDROCODONE BITARTRATE / ACETAMINOPHEN 5MG/500MG (PARACETAMOL, HYDROCODONE BITARTRATE) (TABLETS) (PARACETAMOL, HYDROCODONE BITARTRATE) [Concomitant]
  4. HYDROCODONE BITARTRATE / ACETAMINOPHEN 10MG/660MG (PARACETAMOL, HYDROCODONE BITARTRATE) (TABLETS) (PARACETAMOL, HYDROCODONE BITARTRATE) [Concomitant]
  5. CYMBALTA (DULOXETINE HYDROCHLORIDE) (60 MILLIGRAM, UNKNOWN) (DULOXETINE HYDROCHLORIDE) [Concomitant]
  6. LABETALOL (LABETALOL) (200 MILLIGRAM, UNKNOWN) (LABETALOL) [Concomitant]
  7. LORAZEPAM TABLETS 1MG (LORAZEPAM) (1 MILLIGRAM, UNKNOWN) (LORAZEPAM) [Concomitant]
  8. ALPRAZOLAM IR TABLETS (ALPRAZOLAM) (0.5 MILLIGRAM, UNKNOWN) (ALPRAZOLAM) [Concomitant]
  9. HYDROCHLOROTHIAZIDE TABLETS 25MG (HYDROCHLOROTHIAZIDE) (25 MILLIGRAM, UNKNOWN) (HYDROCHLOROTHIAZIDE) [Concomitant]
  10. MIRTAZAPINE (MIRTAZAPINE) (15 MILLIGRAM, UNKNOWN) (MIRTAZAPINE) [Concomitant]

REACTIONS (6)
  - Intentional drug misuse [None]
  - Toxicity to various agents [None]
  - Unresponsive to stimuli [None]
  - Pneumonia [None]
  - Cardiomegaly [None]
  - Bicuspid aortic valve [None]
